FAERS Safety Report 19900844 (Version 1)
Quarter: 2021Q3

REPORT INFORMATION
  Report Type: Spontaneous
  Country: US (occurrence: US)
  Receive Date: 20210930
  Receipt Date: 20210930
  Transmission Date: 20211014
  Serious: Yes (Hospitalization)
  Sender: FDA-Public Use
  Company Number: None

PATIENT
  Age: 70 Year
  Sex: Female
  Weight: 59.1 kg

DRUGS (1)
  1. PEMBROLIZUMAB (MK?3475)200 MG [Suspect]
     Active Substance: PEMBROLIZUMAB
     Dates: end: 20210915

REACTIONS (7)
  - Aphasia [None]
  - Metastases to central nervous system [None]
  - Confusional state [None]
  - Brain scan abnormal [None]
  - Fatigue [None]
  - Nausea [None]
  - Hemiparesis [None]

NARRATIVE: CASE EVENT DATE: 20210918
